FAERS Safety Report 8976571 (Version 1)
Quarter: 2012Q4

REPORT INFORMATION
  Report Type: Report from Study
  Country: CA (occurrence: CA)
  Receive Date: 20121220
  Receipt Date: 20121220
  Transmission Date: 20130627
  Serious: Yes (Other)
  Sender: FDA-Public Use
  Company Number: CA-ROCHE-1166790

PATIENT
  Sex: Female

DRUGS (1)
  1. OMALIZUMAB [Suspect]
     Indication: ASTHMA
     Route: 065
     Dates: start: 20070425

REACTIONS (9)
  - Hypersensitivity [Recovered/Resolved]
  - Wheezing [Recovered/Resolved]
  - Chest discomfort [Unknown]
  - Nasal congestion [Unknown]
  - Pain [Unknown]
  - Joint swelling [Unknown]
  - Headache [Recovered/Resolved]
  - Fatigue [Unknown]
  - Dyspnoea [Unknown]
